FAERS Safety Report 6335849-1 (Version None)
Quarter: 2009Q3

REPORT INFORMATION
  Report Type: 
  Country: None (occurrence: None)
  Receive Date: 20090828
  Receipt Date: 20090819
  Transmission Date: 20100115
  Serious: Yes (Hospitalization)
  Sender: FDA-Public Use
  Company Number: 2008-03898

PATIENT
  Age: 54 Year
  Sex: Female
  Weight: 34 kg

DRUGS (5)
  1. VELCADE [Suspect]
     Indication: MULTIPLE MYELOMA
     Dosage: 1.4 MG, INTRAVENOUS; 1.3 MG/M2, INTRAVENOUS
     Route: 042
     Dates: start: 20070807, end: 20070914
  2. VELCADE [Suspect]
     Indication: MULTIPLE MYELOMA
     Dosage: 1.4 MG, INTRAVENOUS; 1.3 MG/M2, INTRAVENOUS
     Route: 042
     Dates: start: 20071002
  3. DEXAMETHASONE [Concomitant]
  4. UNASYNA (SULTAMICILLIN) [Concomitant]
  5. SULFAMETHOXAZOLE AND TRIMETHOPRIM [Concomitant]

REACTIONS (1)
  - ENCEPHALITIS HERPES [None]
